FAERS Safety Report 17454918 (Version 1)
Quarter: 2020Q1

REPORT INFORMATION
  Report Type: Spontaneous
  Country: US (occurrence: US)
  Receive Date: 20200225
  Receipt Date: 20200225
  Transmission Date: 20200409
  Serious: No
  Sender: FDA-Public Use
  Company Number: US-TEVA-2020-US-1189506

PATIENT
  Age: 25 Year
  Sex: Female

DRUGS (1)
  1. SPRINTEC [Suspect]
     Active Substance: ETHINYL ESTRADIOL\NORGESTIMATE
     Route: 065
     Dates: start: 20200215

REACTIONS (3)
  - Chest discomfort [Unknown]
  - Tachycardia [Unknown]
  - Flushing [Unknown]

NARRATIVE: CASE EVENT DATE: 202002
